FAERS Safety Report 8375624-X (Version None)
Quarter: 2012Q1

REPORT INFORMATION
  Report Type: 
  Country: None (occurrence: None)
  Receive Date: 20120323
  Receipt Date: 20110131
  Transmission Date: 20120608
  Serious: Yes (Hospitalization)
  Sender: FDA-Public Use
  Company Number: 163-21880-11020371

PATIENT
  Age: 79 Year
  Sex: Female

DRUGS (8)
  1. AMARYL [Concomitant]
  2. CEPHALEXIN [Concomitant]
  3. REVLIMID [Suspect]
     Indication: MYELODYSPLASTIC SYNDROME
     Dosage: 10 MG, QD FOR 21 DAYS, PO
     Route: 048
     Dates: start: 20101123
  4. DOXAZOSIN MESYLATE [Concomitant]
  5. PANTOPRAZOLE [Concomitant]
  6. LASIX [Concomitant]
  7. CARVEDILOL [Concomitant]
  8. SYNTHROID [Concomitant]

REACTIONS (1)
  - PLATELET COUNT DECREASED [None]
